FAERS Safety Report 9535565 (Version 1)
Quarter: 2013Q3

REPORT INFORMATION
  Report Type: Spontaneous
  Country: AU (occurrence: AU)
  Receive Date: 20130919
  Receipt Date: 20130919
  Transmission Date: 20140515
  Serious: Yes (Other)
  Sender: FDA-Public Use
  Company Number: AU-AMGEN-AUSSP2013065539

PATIENT
  Age: 53 Year
  Sex: Male

DRUGS (3)
  1. ENBREL [Suspect]
     Indication: PRODUCT USED FOR UNKNOWN INDICATION
     Dosage: UNK
     Route: 065
  2. METHOTREXATE [Concomitant]
     Dosage: UNK UNK, UNK
  3. FOLIC ACID [Concomitant]
     Dosage: UNK

REACTIONS (1)
  - Subarachnoid haemorrhage [Unknown]
